FAERS Safety Report 26078348 (Version 1)
Quarter: 2025Q4

REPORT INFORMATION
  Report Type: Spontaneous
  Country: US (occurrence: US)
  Receive Date: 20251122
  Receipt Date: 20251122
  Transmission Date: 20260117
  Serious: Yes (Life-Threatening)
  Sender: The J.Molner Company
  Company Number: US-THE J. MOLNER COMPANY-202511000073

PATIENT
  Age: 40 Year
  Sex: Male

DRUGS (5)
  1. LIDOCAINE HYDROCHLORIDE [Suspect]
     Active Substance: LIDOCAINE HYDROCHLORIDE
     Indication: Arrhythmic storm
     Dosage: UNK
     Route: 042
  2. AMIODARONE [Concomitant]
     Active Substance: AMIODARONE
     Indication: Arrhythmic storm
     Route: 042
  3. AMIODARONE [Concomitant]
     Active Substance: AMIODARONE
     Dosage: UNK
     Route: 048
  4. PROPOFOL [Concomitant]
     Active Substance: PROPOFOL
     Indication: Sedation
  5. ROPIVACAINE [Concomitant]
     Active Substance: ROPIVACAINE

REACTIONS (1)
  - Drug ineffective [Unknown]
